FAERS Safety Report 17488272 (Version 1)
Quarter: 2020Q1

REPORT INFORMATION
  Report Type: Spontaneous
  Country: US (occurrence: US)
  Receive Date: 20200302
  Receipt Date: 20200302
  Transmission Date: 20200409
  Serious: Yes (Other)
  Sender: FDA-Public Use
  Company Number: None

PATIENT
  Sex: Female
  Weight: 23.85 kg

DRUGS (1)
  1. IBUPROFEN 800NG [Suspect]
     Active Substance: IBUPROFEN
     Indication: INFLAMMATION
     Dosage: ?          QUANTITY:90 TABLET(S);?
     Route: 048
     Dates: end: 20200115

REACTIONS (3)
  - Scar [None]
  - Pruritus [None]
  - Pain of skin [None]
